FAERS Safety Report 10219556 (Version 1)
Quarter: 2014Q2

REPORT INFORMATION
  Report Type: Spontaneous
  Country: US (occurrence: None)
  Receive Date: 20140603
  Receipt Date: 20140603
  Transmission Date: 20141212
  Serious: Yes (Hospitalization)
  Sender: FDA-Public Use
  Company Number: 2368051

PATIENT
  Age: 70 Year
  Sex: Female

DRUGS (1)
  1. MAGNESIUM SULFATE [Suspect]
     Indication: BLOOD MAGNESIUM DECREASED
     Dosage: (NOT OTHERWISE SPECIFIED)
     Route: 042

REACTIONS (2)
  - Weight decreased [None]
  - Myasthenia gravis crisis [None]
